FAERS Safety Report 17918270 (Version 1)
Quarter: 2020Q2

REPORT INFORMATION
  Report Type: Spontaneous
  Country: CA (occurrence: CA)
  Receive Date: 20200619
  Receipt Date: 20200619
  Transmission Date: 20200714
  Serious: Yes (Life-Threatening, Hospitalization)
  Sender: FDA-Public Use
  Company Number: CA-TEVA-2020-CA-1789755

PATIENT
  Age: 41 Year
  Sex: Female
  Weight: 120 kg

DRUGS (5)
  1. ERGOCALCIFEROL. [Concomitant]
     Active Substance: ERGOCALCIFEROL
  2. LANSOPRAZOLE. [Concomitant]
     Active Substance: LANSOPRAZOLE
  3. ETHINYLESTRADIOL/LEVONORGESTREL [Suspect]
     Active Substance: ETHINYL ESTRADIOL\LEVONORGESTREL
     Indication: MENSTRUATION IRREGULAR
     Dosage: 100 MICROGRAM DAILY;
     Route: 048
  4. ZOPICLONE [Concomitant]
     Active Substance: ZOPICLONE
  5. FERROUS GLUCONATE [Concomitant]
     Active Substance: FERROUS GLUCONATE

REACTIONS (8)
  - Headache [Unknown]
  - Ataxia [Unknown]
  - Transverse sinus thrombosis [Unknown]
  - Gait disturbance [Unknown]
  - Aphasia [Unknown]
  - Haematoma [Unknown]
  - Neck pain [Unknown]
  - Jugular vein occlusion [Unknown]
